FAERS Safety Report 6278254-9 (Version None)
Quarter: 2009Q3

REPORT INFORMATION
  Report Type: 
  Country: None (occurrence: None)
  Receive Date: 20090722
  Receipt Date: 20081010
  Transmission Date: 20100115
  Serious: Yes (Hospitalization, Other)
  Sender: FDA-Public Use
  Company Number: US-PFIZER INC-2008071245

PATIENT
  Sex: Female
  Weight: 76 kg

DRUGS (11)
  1. DILANTIN [Suspect]
     Indication: CONVULSION
     Dates: end: 20060601
  2. DILANTIN [Suspect]
     Dates: end: 20060601
  3. NEXIUM [Concomitant]
  4. TENORMIN [Concomitant]
  5. NORVASC [Concomitant]
  6. DEPAKOTE [Concomitant]
  7. NORCO [Concomitant]
  8. DECADRON [Concomitant]
  9. NYSTATIN [Concomitant]
  10. ZYPREXA [Concomitant]
  11. INSULIN [Concomitant]

REACTIONS (5)
  - AMNESIA [None]
  - CEREBROVASCULAR ACCIDENT [None]
  - HEPATIC FAILURE [None]
  - RASH [None]
  - RENAL FAILURE ACUTE [None]
